FAERS Safety Report 7378336-4 (Version None)
Quarter: 2011Q1

REPORT INFORMATION
  Report Type: 
  Country: None (occurrence: None)
  Receive Date: 20110328
  Receipt Date: 20110317
  Transmission Date: 20110831
  Serious: Yes (Hospitalization, Other)
  Sender: FDA-Public Use
  Company Number: US-ELI_LILLY_AND_COMPANY-US201103005903

PATIENT
  Sex: Female

DRUGS (18)
  1. CYMBALTA [Suspect]
     Dosage: 60 MG, DAILY (1/D)
  2. XANAX /USA/ [Concomitant]
  3. LASIX /USA/ [Concomitant]
  4. CYMBALTA [Suspect]
     Dosage: 90 MG, DAILY (1/D)
  5. VITAMIN B [Concomitant]
  6. FISH OIL [Concomitant]
  7. DARVOCET [Concomitant]
  8. LOPRESSOR [Concomitant]
  9. CYMBALTA [Suspect]
     Dosage: 90 MG, DAILY (1/D)
     Dates: start: 20070101
  10. HYDROCODONE BITARTRATE [Concomitant]
  11. GLUCOPHAGE /USA/ [Concomitant]
     Indication: GLYCOSYLATED HAEMOGLOBIN INCREASED
  12. CYMBALTA [Suspect]
     Dosage: 30 MG, DAILY (1/D)
  13. CRESTOR [Concomitant]
  14. ASCORBIC ACID [Concomitant]
  15. CYMBALTA [Suspect]
     Indication: DEPRESSION
     Dosage: 60 MG, DAILY (1/D)
     Dates: start: 20040101, end: 20070101
  16. GLUCOSAMINE W/CHONDROITIN [Concomitant]
  17. STOOL SOFTENER [Concomitant]
  18. TRAZODONE [Concomitant]

REACTIONS (9)
  - FEELING ABNORMAL [None]
  - GLYCOSYLATED HAEMOGLOBIN INCREASED [None]
  - UTERINE CANCER [None]
  - NAUSEA [None]
  - PULMONARY ARTERIAL HYPERTENSION [None]
  - ANXIETY [None]
  - INCISION SITE COMPLICATION [None]
  - CRYING [None]
  - DRUG INEFFECTIVE [None]
